FAERS Safety Report 9821694 (Version 19)
Quarter: 2020Q2

REPORT INFORMATION
  Report Type: Spontaneous
  Country: US (occurrence: US)
  Receive Date: 20140116
  Receipt Date: 20200407
  Transmission Date: 20200714
  Serious: No
  Sender: FDA-Public Use
  Company Number: US-PFIZER INC-2014014473

PATIENT
  Age: 47 Year
  Sex: Female
  Weight: 63 kg

DRUGS (49)
  1. VALIUM [Concomitant]
     Active Substance: DIAZEPAM
     Dosage: 2 MG, AS NEEDED (TAKE 1 TABLET BY MOUTH EVERY 6 HOURS AS NEEDED)
     Route: 048
     Dates: start: 20160116
  2. GAVILAX [Concomitant]
     Active Substance: POLYETHYLENE GLYCOL 3350
     Dosage: 17 G, UNK
     Route: 048
     Dates: start: 20160601
  3. DUONEB [Concomitant]
     Active Substance: ALBUTEROL SULFATE\IPRATROPIUM BROMIDE
     Indication: WHEEZING
     Dosage: 3 ML, AS NEEDED (TAKE 3 ML INHL NEBULIZATION EVERY 6 HOURS AS NEEDED)
     Route: 045
     Dates: start: 20140416
  4. NALOXONE [Concomitant]
     Active Substance: NALOXONE
     Dosage: UNK
     Dates: start: 20150106
  5. GLUCOPHAGE [Concomitant]
     Active Substance: METFORMIN HYDROCHLORIDE
     Dosage: 1000 MG, 2X/DAY
     Route: 048
     Dates: start: 20151202
  6. VALTREX [Concomitant]
     Active Substance: VALACYCLOVIR HYDROCHLORIDE
     Dosage: 1 G, UNK
     Route: 048
     Dates: start: 20140624
  7. DIAZEPAM. [Concomitant]
     Active Substance: DIAZEPAM
     Indication: ANXIETY
     Dosage: 2 MG, UNK
     Route: 048
     Dates: start: 20150224
  8. SOMA [Concomitant]
     Active Substance: CARISOPRODOL
     Indication: FIBROMYALGIA
     Dosage: 350 MG, 2X/DAY
  9. PULMICORT FLEXHALER [Concomitant]
     Active Substance: BUDESONIDE
     Dosage: UNK, 2X/DAY (TAKE  1 PUFF 2 TIMES A DAY)
     Route: 045
     Dates: start: 20150918
  10. GAVILAX [Concomitant]
     Active Substance: POLYETHYLENE GLYCOL 3350
     Dosage: 17 G, UNK
     Route: 048
     Dates: start: 20160106
  11. MONISTAT 3 [Concomitant]
     Active Substance: MICONAZOLE NITRATE
     Dosage: 1 DF, 1X/DAY (1 CAPFUL AT BEDTIME)/ (1 CAPSULE AT BEDTIME FOR 3 DAYS)
     Route: 067
     Dates: start: 20160107
  12. SYMBICORT [Concomitant]
     Active Substance: BUDESONIDE\FORMOTEROL FUMARATE DIHYDRATE
     Dosage: UNK, 2X/DAY (TAKE 2 PUFFS 2 TIMES A DAY)
     Dates: start: 20140206
  13. LYRICA [Suspect]
     Active Substance: PREGABALIN
     Dosage: 150 MG, 3X/DAY
     Route: 048
     Dates: start: 20150323
  14. LYRICA [Suspect]
     Active Substance: PREGABALIN
     Dosage: 150 MG, 3X/DAY
     Route: 048
     Dates: start: 20160113, end: 2016
  15. VENTOLIN HFA [Concomitant]
     Active Substance: ALBUTEROL SULFATE
     Indication: WHEEZING
     Dosage: UNK, AS NEEDED (TAKE 2 PUFFS 4 TIMES A DAY AS NEEDED)
     Route: 045
     Dates: start: 20140206
  16. PULMICORT FLEXHALER [Concomitant]
     Active Substance: BUDESONIDE
     Dosage: UNK, 2X/DAY (TAKE 1 PUFFS 2 TIMES A DAY)
     Route: 045
     Dates: start: 20150916
  17. FML [Concomitant]
     Active Substance: FLUOROMETHOLONE
     Dosage: UNK
     Route: 047
     Dates: start: 20160109
  18. PREVACID [Concomitant]
     Active Substance: LANSOPRAZOLE
     Dosage: 30 MG, DAILY
     Route: 048
     Dates: start: 20150127
  19. XOPENEX [Concomitant]
     Active Substance: LEVALBUTEROL HYDROCHLORIDE
     Indication: WHEEZING
     Dosage: 3 ML, AS NEEDED (TAKE 3 ML BY NEBULIZER EVERY 6 HOURS AS NEEDED )
     Route: 045
     Dates: start: 20150601
  20. PHENERGAN [Concomitant]
     Active Substance: PROMETHAZINE HYDROCHLORIDE
     Dosage: 25 MG, 1X/DAY (TAKE 1 TABLET BY MOUTH AT BEDTIME)
     Route: 048
     Dates: start: 20151215
  21. LYRICA [Suspect]
     Active Substance: PREGABALIN
     Dosage: 150 MG, 3X/DAY
     Route: 048
     Dates: start: 20161230
  22. LYRICA [Suspect]
     Active Substance: PREGABALIN
     Dosage: 150 MG, 3X/DAY
     Route: 048
     Dates: start: 20160113
  23. LYRICA [Suspect]
     Active Substance: PREGABALIN
     Dosage: 150 MG, 3X/DAY
     Route: 048
     Dates: start: 20140304
  24. LYRICA [Suspect]
     Active Substance: PREGABALIN
     Dosage: 150 MG, 3X/DAY
     Route: 048
     Dates: start: 20150106
  25. LYRICA [Suspect]
     Active Substance: PREGABALIN
     Dosage: 150 MG, 3X/DAY
     Route: 048
     Dates: start: 20170711
  26. DUONEB [Concomitant]
     Active Substance: ALBUTEROL SULFATE\IPRATROPIUM BROMIDE
     Dosage: 2.5 ML, 4X/DAY
     Route: 045
     Dates: start: 20140207
  27. MONISTAT 3 [Concomitant]
     Active Substance: MICONAZOLE NITRATE
     Dosage: 1 DF, 1X/DAY (200 MG/5 GRAM  (4%) /(INSERT 1 CAPSULE AT BEDTIME FOR 3 DAYS)
     Route: 067
     Dates: start: 20160107
  28. LYRICA [Suspect]
     Active Substance: PREGABALIN
     Dosage: 150 MG, 3X/DAY
     Route: 048
     Dates: start: 2013
  29. SOMA [Concomitant]
     Active Substance: CARISOPRODOL
     Indication: MYALGIA
  30. ATROVENT [Concomitant]
     Active Substance: IPRATROPIUM BROMIDE
     Dosage: 2.5 ML, 4X/DAY
     Route: 045
     Dates: start: 20140207
  31. AMOXIL [Concomitant]
     Active Substance: AMOXICILLIN
     Dosage: 500 MG, UNK
     Route: 048
     Dates: start: 20150319
  32. MOTRIN [Concomitant]
     Active Substance: IBUPROFEN
     Dosage: 600 MG, UNK
     Route: 048
     Dates: start: 20141202
  33. LYRICA [Suspect]
     Active Substance: PREGABALIN
     Indication: FIBROMYALGIA
     Dosage: 150 MG, 3X/DAY
     Route: 048
     Dates: start: 2013, end: 2013
  34. DIAZEPAM. [Concomitant]
     Active Substance: DIAZEPAM
     Dosage: 2 MG, AS NEEDED (TAKE 1 TABLET BY MOUTH EVERY 6 HOURS AS NEEDED )
     Route: 048
     Dates: start: 20160116
  35. ABREVA [Concomitant]
     Active Substance: DOCOSANOL
     Dosage: UNK (APPLY TOPICALLY 5 TIMES  DAILY)
     Route: 061
     Dates: start: 20150706
  36. FLONASE [Concomitant]
     Active Substance: FLUTICASONE PROPIONATE
     Dosage: 4 DF, UNK (USE 2 SPRAYS IN EACH NOSTRIL DAILY)
     Route: 045
     Dates: start: 20140307
  37. SEROQUEL [Concomitant]
     Active Substance: QUETIAPINE FUMARATE
     Dosage: 50 MG, 2X/DAY
     Route: 048
     Dates: start: 20151006
  38. SEROQUEL [Concomitant]
     Active Substance: QUETIAPINE FUMARATE
     Dosage: 25 MG, UNK
     Route: 048
     Dates: start: 20151006
  39. ADVIL [IBUPROFEN] [Concomitant]
     Active Substance: IBUPROFEN
     Dosage: 600 MG, UNK
     Route: 048
     Dates: start: 20141202
  40. VENTOLIN HFA [Concomitant]
     Active Substance: ALBUTEROL SULFATE
     Dosage: UNK, AS NEEDED (TAKE 2 PUFFS 4 TIMES A DAY AS NEEDED)
     Dates: start: 20150306
  41. VALIUM [Concomitant]
     Active Substance: DIAZEPAM
     Indication: ANXIETY
     Dosage: 2 UNK, UNK
     Route: 048
     Dates: start: 20150224
  42. PREVACID [Concomitant]
     Active Substance: LANSOPRAZOLE
     Dosage: 30 MG, DAILY (TAKE 1 CAPSULE BY MOUTH DAILY)
     Route: 048
     Dates: start: 20150622
  43. NALOXONE [Concomitant]
     Active Substance: NALOXONE
     Dosage: UNK
     Dates: start: 20160106
  44. RESTORIL [Concomitant]
     Active Substance: TEMAZEPAM
     Indication: ANXIETY
  45. LYRICA [Suspect]
     Active Substance: PREGABALIN
     Dosage: 150 MG, 3X/DAY
     Route: 048
     Dates: start: 20160112, end: 2016
  46. LYRICA [Suspect]
     Active Substance: PREGABALIN
     Dosage: 150 MG, 3X/DAY
     Route: 048
     Dates: start: 20180829
  47. FML [Concomitant]
     Active Substance: FLUOROMETHOLONE
     Dosage: UNK
     Route: 047
     Dates: start: 20150109
  48. GLUCOPHAGE [Concomitant]
     Active Substance: METFORMIN HYDROCHLORIDE
     Dosage: 1000 MG, 2X/DAY
     Route: 048
     Dates: start: 20141202
  49. RESTORIL [Concomitant]
     Active Substance: TEMAZEPAM
     Indication: INSOMNIA
     Dosage: 30 MG, AS NEEDED
     Route: 048
     Dates: start: 20150224

REACTIONS (2)
  - Drug withdrawal syndrome [Unknown]
  - Impaired work ability [Unknown]

NARRATIVE: CASE EVENT DATE: 201811
